FAERS Safety Report 5126609-8 (Version None)
Quarter: 2006Q4

REPORT INFORMATION
  Report Type: 
  Country: None (occurrence: None)
  Receive Date: 20061010
  Receipt Date: 20060927
  Transmission Date: 20070319
  Serious: Yes (Other)
  Sender: FDA-Public Use
  Company Number: 2006102335

PATIENT
  Age: 68 Year
  Sex: Female

DRUGS (4)
  1. GABAPENTIN [Suspect]
     Indication: PAIN
     Dosage: (300 MG)
     Dates: start: 20060705
  2. NEURONTIN [Suspect]
     Indication: PAIN
     Dates: start: 20060101
  3. FOSAMAX [Concomitant]
  4. CORTISONE ACETATE [Suspect]
     Dates: start: 20060501

REACTIONS (5)
  - ALOPECIA [None]
  - DRUG INEFFECTIVE [None]
  - THERAPY NON-RESPONDER [None]
  - VISION BLURRED [None]
  - WEIGHT INCREASED [None]
